FAERS Safety Report 15792546 (Version 1)
Quarter: 2019Q1

REPORT INFORMATION
  Report Type: Spontaneous
  Country: US (occurrence: US)
  Receive Date: 20190107
  Receipt Date: 20190107
  Transmission Date: 20190417
  Serious: No
  Sender: FDA-Public Use
  Company Number: US-DRREDDYS-USA/USA/18/0105700

PATIENT
  Sex: Female
  Weight: 55.45 kg

DRUGS (6)
  1. LEVOTHYROXINE. [Concomitant]
     Active Substance: LEVOTHYROXINE
     Indication: HYPOTHYROIDISM
  2. SUMATRIPTAN TABLETS [Concomitant]
     Active Substance: SUMATRIPTAN
     Indication: MIGRAINE
  3. EXCEDRIN [Concomitant]
     Active Substance: ACETAMINOPHEN\ASPIRIN\CAFFEINE
     Indication: MIGRAINE
  4. SUMATRIPTAN INJECTION USP, 6 MG/0.5 ML [Suspect]
     Active Substance: SUMATRIPTAN
     Indication: PRODUCT USED FOR UNKNOWN INDICATION
     Dosage: SUMATRIPTAN SUCCINATE INJECTION USP AUTO INJECTION SYSTEM 6MG/0.5ML-DRL 2CT
     Route: 058
     Dates: start: 20181117
  5. C-ISOMETHEPTENE [Concomitant]
     Indication: MIGRAINE
     Dosage: C-ISOMETHEPTENE/ACET 65/325 MG
  6. LISINOPRIL. [Concomitant]
     Active Substance: LISINOPRIL
     Indication: BLOOD PRESSURE MEASUREMENT

REACTIONS (1)
  - Expired product administered [Unknown]
